FAERS Safety Report 20376293 (Version 1)
Quarter: 2022Q1

REPORT INFORMATION
  Report Type: Spontaneous
  Country: US (occurrence: US)
  Receive Date: 20220125
  Receipt Date: 20220125
  Transmission Date: 20220423
  Serious: Yes (Other)
  Sender: FDA-Public Use
  Company Number: US-UPSHER-SMITH LABORATORIES, LLC-2021USL00095

PATIENT
  Sex: Female

DRUGS (2)
  1. AMIODARONE HYDROCHLORIDE [Suspect]
     Active Substance: AMIODARONE HYDROCHLORIDE
     Indication: Atrial fibrillation
     Dosage: UNK
     Route: 048
     Dates: start: 200903
  2. UNSPECIFIED INGREDIENT [Suspect]
     Active Substance: UNSPECIFIED INGREDIENT
     Indication: Pulmonary fibrosis

REACTIONS (6)
  - Pulmonary fibrosis [Unknown]
  - Blindness [Unknown]
  - Thyroid function test abnormal [Unknown]
  - Asthenia [Unknown]
  - Unevaluable event [Unknown]
  - Off label use [Unknown]

NARRATIVE: CASE EVENT DATE: 20090301
